FAERS Safety Report 24203199 (Version 1)
Quarter: 2024Q3

REPORT INFORMATION
  Report Type: Spontaneous
  Country: US (occurrence: US)
  Receive Date: 20240813
  Receipt Date: 20240813
  Transmission Date: 20241017
  Serious: No
  Sender: Tarsus Pharmaceuticals
  Company Number: US-TARSUS PHARMACEUTICALS-TSP-US-2024-000234

PATIENT
  Sex: Female

DRUGS (4)
  1. XDEMVY [Suspect]
     Active Substance: LOTILANER
     Indication: Arthropod infestation
     Dosage: 1 DROP, BID (IN EACH EYE, PREFERABLY 12 HOURS APART)
     Route: 047
     Dates: start: 20240527
  2. HYPOCHLOROUS ACID [Concomitant]
     Active Substance: HYPOCHLOROUS ACID
     Indication: Product used for unknown indication
     Dosage: UNK
     Route: 065
  3. ESTROGEN NOS [Concomitant]
     Active Substance: ESTROGENS
     Indication: Product used for unknown indication
     Dosage: UNK (PADS)
     Route: 065
  4. PROGESTERONE [Concomitant]
     Active Substance: PROGESTERONE
     Indication: Product used for unknown indication
     Dosage: UNK
     Route: 065

REACTIONS (9)
  - Abdominal pain upper [Recovered/Resolved]
  - Illness [Recovered/Resolved]
  - Pruritus [Recovered/Resolved]
  - Nausea [Recovered/Resolved]
  - Headache [Recovered/Resolved]
  - Hypoaesthesia oral [Recovered/Resolved]
  - Inappropriate schedule of product administration [Unknown]
  - Ocular hyperaemia [Recovering/Resolving]
  - Vitreous floaters [Recovering/Resolving]

NARRATIVE: CASE EVENT DATE: 20240101
